FAERS Safety Report 4923838-0 (Version None)
Quarter: 2006Q1

REPORT INFORMATION
  Report Type: 
  Country: None (occurrence: None)
  Receive Date: 20060227
  Receipt Date: 20051215
  Transmission Date: 20060701
  Serious: Yes (Death, Hospitalization, Other)
  Sender: FDA-Public Use
  Company Number: US-AMGEN-KDL161501

PATIENT
  Sex: Female
  Weight: 60.6 kg

DRUGS (11)
  1. PROCRIT [Suspect]
     Indication: ANAEMIA OF MALIGNANT DISEASE
     Dates: start: 20050525, end: 20051206
  2. CARBOPLATIN [Concomitant]
     Dates: start: 20050520
  3. PACLITAXEL [Concomitant]
     Dates: start: 20050520
  4. ERBITUX [Concomitant]
     Dates: end: 20051206
  5. ALIMTA [Concomitant]
     Dates: end: 20051206
  6. COMPAZINE [Concomitant]
  7. ZOFRAN [Concomitant]
  8. XANAX [Concomitant]
  9. NEXIUM [Concomitant]
  10. MULTIVITAMIN [Concomitant]
  11. AMBIEN [Concomitant]

REACTIONS (4)
  - CHOLELITHIASIS [None]
  - NON-SMALL CELL LUNG CANCER METASTATIC [None]
  - THERAPEUTIC RESPONSE DECREASED [None]
  - TUMOUR HAEMORRHAGE [None]
